FAERS Safety Report 4877036-X (Version None)
Quarter: 2005Q4

REPORT INFORMATION
  Report Type: 
  Country: None (occurrence: None)
  Receive Date: 20051206
  Receipt Date: 20050817
  Transmission Date: 20060501
  Serious: No
  Sender: FDA-Public Use
  Company Number: USA0508105856

PATIENT
  Sex: Female

DRUGS (1)
  1. CYMBALTA [Suspect]
     Dosage: 30 MG
     Dates: start: 20050401, end: 20050415

REACTIONS (5)
  - ANTINUCLEAR ANTIBODY POSITIVE [None]
  - FATIGUE [None]
  - HISTONE ANTIBODY POSITIVE [None]
  - LUPUS-LIKE SYNDROME [None]
  - RED BLOOD CELL SEDIMENTATION RATE INCREASED [None]
